FAERS Safety Report 4340546-8 (Version None)
Quarter: 2004Q2

REPORT INFORMATION
  Report Type: 
  Country: None (occurrence: None)
  Receive Date: 20040414
  Receipt Date: 20040401
  Transmission Date: 20050107
  Serious: Yes (Hospitalization)
  Sender: FDA-Public Use
  Company Number: 205643

PATIENT
  Age: 52 Year
  Sex: Female

DRUGS (2)
  1. HERCEPTIN [Suspect]
     Indication: BREAST CANCER
     Dosage: 135 MG, 1/WEEK, INTRAVENOUS
     Route: 042
  2. TAXOL [Suspect]
     Dosage: 150 MG, 1/WEEK, INTRAVENOUS
     Route: 042
     Dates: start: 20030828

REACTIONS (1)
  - WOUND INFECTION [None]
